FAERS Safety Report 20209179 (Version 1)
Quarter: 2021Q4

REPORT INFORMATION
  Report Type: Spontaneous
  Country: JP (occurrence: JP)
  Receive Date: 20211220
  Receipt Date: 20211220
  Transmission Date: 20220303
  Serious: Yes (Hospitalization)
  Sender: FDA-Public Use
  Company Number: JP-PRINSTON PHARMACEUTICAL INC.-2021PRN00432

PATIENT
  Age: 63 Year
  Sex: Male

DRUGS (4)
  1. METFORMIN HYDROCHLORIDE [Suspect]
     Active Substance: METFORMIN HYDROCHLORIDE
     Indication: Diabetes mellitus
     Dosage: 500 MG, 1X/DAY
     Route: 065
  2. TENELIGLIPTIN [Concomitant]
     Active Substance: TENELIGLIPTIN
     Indication: Diabetes mellitus
     Dosage: 20 MG, 1X/DAY
     Route: 065
  3. ACARBOSE [Concomitant]
     Active Substance: ACARBOSE
     Indication: Diabetes mellitus
     Dosage: 100 MG, 1X/DAY
     Route: 065
  4. PIOGLITAZONE [Concomitant]
     Active Substance: PIOGLITAZONE
     Indication: Diabetes mellitus
     Dosage: 15 MG, 1X/DAY
     Route: 065

REACTIONS (1)
  - Encephalopathy [Recovered/Resolved]
